FAERS Safety Report 10395289 (Version 2)
Quarter: 2014Q3

REPORT INFORMATION
  Report Type: Spontaneous
  Country: BR (occurrence: BR)
  Receive Date: 20140820
  Receipt Date: 20140916
  Transmission Date: 20150326
  Serious: Yes (Other)
  Sender: FDA-Public Use
  Company Number: PHHY2014BR103094

PATIENT
  Age: 76 Year
  Sex: Female

DRUGS (8)
  1. STALEVO [Suspect]
     Active Substance: CARBIDOPA\ENTACAPONE\LEVODOPA
     Dosage: 150 MG, TID (THREE TIMES A DAY)
     Route: 048
  2. VELIJA [Suspect]
     Active Substance: DULOXETINE HYDROCHLORIDE
     Indication: DEPRESSION
     Dosage: UNK
  3. LANSOPRAZOLE. [Suspect]
     Active Substance: LANSOPRAZOLE
     Dosage: 1 DF, DAILY (ONE TABLET DAILY)
  4. RIVOTRIL [Suspect]
     Active Substance: CLONAZEPAM
     Dosage: UNK
  5. STALEVO [Suspect]
     Active Substance: CARBIDOPA\ENTACAPONE\LEVODOPA
     Indication: PARKINSON^S DISEASE
     Dosage: 100 MG, TID (THREE TIMES A DAY)
     Route: 048
  6. STALEVO [Suspect]
     Active Substance: CARBIDOPA\ENTACAPONE\LEVODOPA
     Dosage: 100 MG, QID (FOUR TIMES A DAY)
     Route: 048
  7. PURAN [Suspect]
     Active Substance: LEVOTHYROXINE SODIUM
     Dosage: 1 DF, DAILY (ONE TABLET DAILY)
  8. EXODUS//ESCITALOPRAM OXALATE [Suspect]
     Active Substance: ESCITALOPRAM OXALATE
     Dosage: UNK

REACTIONS (10)
  - Tremor [Not Recovered/Not Resolved]
  - Cataract [Unknown]
  - Weight decreased [Recovered/Resolved]
  - Eye swelling [Not Recovered/Not Resolved]
  - Nervousness [Not Recovered/Not Resolved]
  - Panic reaction [Unknown]
  - Asthenia [Not Recovered/Not Resolved]
  - Eyelash discolouration [Not Recovered/Not Resolved]
  - Fatigue [Unknown]
  - Visual impairment [Not Recovered/Not Resolved]

NARRATIVE: CASE EVENT DATE: 20140912
